FAERS Safety Report 11340903 (Version 1)
Quarter: 2015Q3

REPORT INFORMATION
  Report Type: Spontaneous
  Country: US (occurrence: US)
  Receive Date: 20150805
  Receipt Date: 20150805
  Transmission Date: 20151125
  Serious: No
  Sender: FDA-Public Use
  Company Number: US-JNJFOC-20150214314

PATIENT

DRUGS (6)
  1. KETOCONAZOLE. [Suspect]
     Active Substance: KETOCONAZOLE
     Indication: DRUG ABUSE
     Route: 065
  2. ABT-436 [Interacting]
     Active Substance: VASOPRESSIN
     Indication: DRUG ABUSE
     Route: 065
  3. ABT-436 [Interacting]
     Active Substance: VASOPRESSIN
     Indication: MAJOR DEPRESSION
     Route: 065
  4. KETOCONAZOLE. [Suspect]
     Active Substance: KETOCONAZOLE
     Indication: MAJOR DEPRESSION
     Route: 065
  5. ABT-436 [Interacting]
     Active Substance: VASOPRESSIN
     Indication: ANXIETY DISORDER
     Route: 065
  6. KETOCONAZOLE. [Suspect]
     Active Substance: KETOCONAZOLE
     Indication: ANXIETY DISORDER
     Route: 065

REACTIONS (4)
  - Drug level increased [Unknown]
  - Drug interaction [Unknown]
  - Product use issue [Unknown]
  - Gastrointestinal disorder [Unknown]
